FAERS Safety Report 4786609-4 (Version None)
Quarter: 2005Q3

REPORT INFORMATION
  Report Type: 
  Country: None (occurrence: None)
  Receive Date: 20050927
  Receipt Date: 20050628
  Transmission Date: 20060218
  Serious: No
  Sender: FDA-Public Use
  Company Number: USA0506101505

PATIENT
  Sex: Female

DRUGS (1)
  1. STRATTERA [Suspect]
     Indication: ATTENTION DEFICIT/HYPERACTIVITY DISORDER
     Dosage: 120 MG DAY
     Dates: start: 20040628

REACTIONS (4)
  - ACCIDENTAL OVERDOSE [None]
  - HERPES ZOSTER [None]
  - MEDICATION ERROR [None]
  - MOOD SWINGS [None]
